FAERS Safety Report 19976984 (Version 2)
Quarter: 2021Q4

REPORT INFORMATION
  Report Type: Spontaneous
  Country: DE (occurrence: DE)
  Receive Date: 20211021
  Receipt Date: 20211129
  Transmission Date: 20220303
  Serious: Yes (Life-Threatening, Hospitalization, Other)
  Sender: FDA-Public Use
  Company Number: DE-BRISTOL-MYERS SQUIBB COMPANY-BMS-2021-084842

PATIENT
  Age: 38 Year
  Sex: Female
  Weight: 98 kg

DRUGS (6)
  1. ELIQUIS [Suspect]
     Active Substance: APIXABAN
     Indication: Thrombosis prophylaxis
     Dosage: 5 MILLIGRAM, BID
     Route: 065
     Dates: start: 2016
  2. ELIQUIS [Suspect]
     Active Substance: APIXABAN
     Dosage: 2.5 MILLIGRAM, BID
     Route: 065
     Dates: start: 20190725, end: 20210814
  3. ELIQUIS [Suspect]
     Active Substance: APIXABAN
     Dosage: 2.5 MILLIGRAM, BID
     Route: 065
     Dates: start: 20210818, end: 20210831
  4. ELIQUIS [Suspect]
     Active Substance: APIXABAN
     Dosage: 2.5 MILLIGRAM, BID
     Route: 065
     Dates: start: 20211007
  5. DESOGESTREL [Suspect]
     Active Substance: DESOGESTREL
     Indication: Contraception
     Dosage: UNK
     Route: 065
     Dates: start: 2016
  6. LEVOTHYROXINE [Concomitant]
     Active Substance: LEVOTHYROXINE
     Indication: Autoimmune thyroiditis
     Dosage: 75 MCG FROM MONDAY TO FRIDAY AND 50 MCG ON WEEKENDS EACH DAY
     Route: 065

REACTIONS (3)
  - Arterial haemorrhage [Recovering/Resolving]
  - Heavy menstrual bleeding [Recovering/Resolving]
  - Prescribed overdose [Unknown]

NARRATIVE: CASE EVENT DATE: 20160101
